FAERS Safety Report 22331283 (Version 1)
Quarter: 2023Q2

REPORT INFORMATION
  Report Type: Spontaneous
  Country: US (occurrence: None)
  Receive Date: 20230515
  Receipt Date: 20230515
  Transmission Date: 20230721
  Serious: Yes (Other)
  Sender: FDA-Public Use
  Company Number: None

PATIENT
  Age: 48 Year
  Sex: Female
  Weight: 90 kg

DRUGS (7)
  1. ENDOCET [Suspect]
     Active Substance: ACETAMINOPHEN\OXYCODONE HYDROCHLORIDE
     Indication: Pain
     Dosage: OTHER QUANTITY : 120 TABLET(S);?FREQUENCY : 4 TIMES A DAY;?
     Route: 048
  2. Perocet [Concomitant]
  3. FLEXERIL [Concomitant]
     Active Substance: CYCLOBENZAPRINE HYDROCHLORIDE
  4. ZOLOFT [Concomitant]
     Active Substance: SERTRALINE HYDROCHLORIDE
  5. CYMBALTA [Concomitant]
     Active Substance: DULOXETINE HYDROCHLORIDE
  6. neurotins [Concomitant]
  7. atenlol [Concomitant]

REACTIONS (4)
  - Drug ineffective [None]
  - Gastric disorder [None]
  - Withdrawal syndrome [None]
  - Product formulation issue [None]

NARRATIVE: CASE EVENT DATE: 20230508
